FAERS Safety Report 9307630 (Version 3)
Quarter: 2013Q3

REPORT INFORMATION
  Report Type: Spontaneous
  Country: US (occurrence: US)
  Receive Date: 20130524
  Receipt Date: 20130917
  Transmission Date: 20140515
  Serious: No
  Sender: FDA-Public Use
  Company Number: US-PFIZER INC-2013159764

PATIENT
  Sex: 0

DRUGS (1)
  1. LYRICA [Suspect]
     Indication: ANXIETY
     Dosage: UNK

REACTIONS (4)
  - Off label use [Unknown]
  - Memory impairment [Unknown]
  - Thinking abnormal [Unknown]
  - Distractibility [Unknown]
